FAERS Safety Report 17097191 (Version 1)
Quarter: 2019Q4

REPORT INFORMATION
  Report Type: Spontaneous
  Country: HR (occurrence: HR)
  Receive Date: 20191202
  Receipt Date: 20191202
  Transmission Date: 20200122
  Serious: Yes (Other)
  Sender: FDA-Public Use
  Company Number: HR-TEVA-2019-HR-1144193

PATIENT
  Sex: Male

DRUGS (3)
  1. NORMABEL [Suspect]
     Active Substance: DIAZEPAM
     Route: 048
     Dates: start: 20190903, end: 20190903
  2. MIRTAZAPIN [Suspect]
     Active Substance: MIRTAZAPINE
     Route: 048
     Dates: start: 20190903, end: 20190903
  3. SULPIRIDE [Suspect]
     Active Substance: SULPIRIDE
     Route: 048
     Dates: start: 20190903, end: 20190903

REACTIONS (4)
  - Somnolence [Unknown]
  - Intentional overdose [Unknown]
  - Suicide attempt [Unknown]
  - Sedation complication [Unknown]

NARRATIVE: CASE EVENT DATE: 20190903
